FAERS Safety Report 5309496-4 (Version None)
Quarter: 2007Q1

REPORT INFORMATION
  Report Type: 
  Country: None (occurrence: None)
  Receive Date: 20070201
  Receipt Date: 20061114
  Transmission Date: 20070707
  Serious: No
  Sender: FDA-Public Use
  Company Number: 258903

PATIENT
  Age: 60 Year
  Sex: Female
  Weight: 76.6 kg

DRUGS (1)
  1. LEVEMIR [Suspect]
     Indication: DIABETES MELLITUS INSULIN-DEPENDENT
     Dosage: 50 IU, BID, SUBCUTANEOUS
     Route: 058
     Dates: start: 20060801, end: 20061122

REACTIONS (3)
  - BLOOD GLUCOSE INCREASED [None]
  - INJECTION SITE SWELLING [None]
  - RASH [None]
